FAERS Safety Report 8489273-6 (Version None)
Quarter: 2012Q2

REPORT INFORMATION
  Report Type: 
  Country: None (occurrence: None)
  Receive Date: 20120628
  Receipt Date: 20120628
  Transmission Date: 20120825
  Serious: Yes (Hospitalization)
  Sender: FDA-Public Use
  Company Number: None

PATIENT
  Sex: Male
  Weight: 103 kg

DRUGS (2)
  1. ETOPOSIDE [Suspect]
     Dosage: 100 MG/M2 TO 75 MG/M2 D/T RADE 3 LFTS@CYCLE 1
  2. CISPLATIN [Suspect]
     Dosage: 80 MG/M2 TO 60MG/M2 D/T GRADE 3 LFTS @ CYCLE 1.

REACTIONS (1)
  - MONOCYTE COUNT DECREASED [None]
